FAERS Safety Report 9088875 (Version 1)
Quarter: 2013Q1

REPORT INFORMATION
  Report Type: Report from Study
  Country: US (occurrence: US)
  Receive Date: 20130130
  Receipt Date: 20130130
  Transmission Date: 20140127
  Serious: No
  Sender: FDA-Public Use
  Company Number: US-ABBOTT-12P-163-0981692-00

PATIENT
  Age: 58 Year
  Sex: Female
  Weight: 93.07 kg

DRUGS (36)
  1. HUMIRA [Suspect]
     Indication: PSORIASIS
     Route: 058
     Dates: start: 20120703
  2. C-Q10 [Concomitant]
     Indication: PRODUCT USED FOR UNKNOWN INDICATION
  3. AMLODIPINE [Concomitant]
     Indication: HYPERTENSION
  4. ARMOUR THYROID [Concomitant]
     Indication: HYPOTHYROIDISM
  5. ASPIRIN [Concomitant]
     Indication: PRODUCT USED FOR UNKNOWN INDICATION
     Dosage: LOW DOSE
  6. CALCIUM WITH VITAMIN D [Concomitant]
     Indication: PRODUCT USED FOR UNKNOWN INDICATION
  7. CLOBEX [Concomitant]
     Indication: PSORIASIS
  8. TRAZODONE [Concomitant]
     Indication: DEPRESSION
  9. TRAZODONE [Concomitant]
     Indication: SLEEP DISORDER
  10. DIOVAN HCT [Concomitant]
     Indication: HYPERTENSION
  11. EFFEXOR XR [Concomitant]
     Indication: DEPRESSION
  12. FOLBIC [Concomitant]
     Indication: PRODUCT USED FOR UNKNOWN INDICATION
  13. JANUVIA [Concomitant]
     Indication: DIABETES MELLITUS
  14. LASIX [Concomitant]
     Indication: HYPERTENSION
  15. LOVAZA [Concomitant]
     Indication: BLOOD CHOLESTEROL INCREASED
  16. METROGEL [Concomitant]
     Indication: ROSACEA
  17. MIRALEX [Concomitant]
     Indication: PRODUCT USED FOR UNKNOWN INDICATION
  18. MULTIVITAMIN [Concomitant]
     Indication: PRODUCT USED FOR UNKNOWN INDICATION
  19. NAPROXEN [Concomitant]
     Indication: PAIN
  20. CHOLEST-OFF [Concomitant]
     Indication: BLOOD CHOLESTEROL INCREASED
  21. OMEPRASOLE [Concomitant]
     Indication: GASTROOESOPHAGEAL REFLUX DISEASE
  22. POTASSIUM CHLORIDE [Concomitant]
     Indication: PRODUCT USED FOR UNKNOWN INDICATION
  23. PREMARIN [Concomitant]
     Indication: PRODUCT USED FOR UNKNOWN INDICATION
     Route: 067
  24. PROCTOZONE H [Concomitant]
     Indication: ANAL FISTULA
  25. PROTOPIC [Concomitant]
     Indication: PSORIASIS
  26. TRIAMCINOLONE [Concomitant]
     Indication: PRODUCT USED FOR UNKNOWN INDICATION
  27. TACLONEX [Concomitant]
     Indication: PSORIASIS
  28. TACLONEX [Concomitant]
     Indication: PSORIASIS
  29. VICODIN [Concomitant]
     Indication: PAIN
  30. VITAMIN D3 [Concomitant]
     Indication: PRODUCT USED FOR UNKNOWN INDICATION
  31. WELCHOL [Concomitant]
     Indication: BLOOD CHOLESTEROL INCREASED
  32. WELLBUTRIN XL [Concomitant]
     Indication: DEPRESSION
  33. XANAX [Concomitant]
     Indication: ANXIETY
  34. XYZAL [Concomitant]
     Indication: HYPERSENSITIVITY
  35. VERAMYST [Concomitant]
     Indication: HYPERSENSITIVITY
     Route: 045
  36. ALLERGY SHOTS [Concomitant]
     Indication: HYPERSENSITIVITY

REACTIONS (12)
  - Hepatic enzyme increased [Not Recovered/Not Resolved]
  - Dizziness [Not Recovered/Not Resolved]
  - Dizziness [Not Recovered/Not Resolved]
  - Local swelling [Recovered/Resolved]
  - Vertigo [Not Recovered/Not Resolved]
  - Weight increased [Recovered/Resolved]
  - Fatigue [Not Recovered/Not Resolved]
  - Joint swelling [Not Recovered/Not Resolved]
  - Headache [Not Recovered/Not Resolved]
  - Gout [Not Recovered/Not Resolved]
  - Back pain [Not Recovered/Not Resolved]
  - Rash [Not Recovered/Not Resolved]
